FAERS Safety Report 8959914 (Version 1)
Quarter: 2012Q4

REPORT INFORMATION
  Report Type: 
  Country: US (occurrence: US)
  Receive Date: 20121211
  Receipt Date: 20121211
  Transmission Date: 20130627
  Serious: Yes (Hospitalization)
  Sender: FDA-Public Use
  Company Number: US-ASTRAZENECA-2012SE92300

PATIENT
  Age: 75 Year
  Sex: Male

DRUGS (1)
  1. PROPOFOL [Suspect]
     Indication: ENDOSCOPY
     Route: 042
     Dates: start: 20121004, end: 20121004

REACTIONS (3)
  - Influenza like illness [Recovered/Resolved]
  - Pyrexia [Recovered/Resolved]
  - Chills [Recovered/Resolved]
